FAERS Safety Report 14037133 (Version 1)
Quarter: 2017Q4

REPORT INFORMATION
  Report Type: Spontaneous
  Country: US (occurrence: None)
  Receive Date: 20171003
  Receipt Date: 20171003
  Transmission Date: 20180321
  Serious: Yes (Other)
  Sender: FDA-Public Use
  Company Number: None

PATIENT
  Age: 34 Year
  Sex: Male
  Weight: 95.35 kg

DRUGS (1)
  1. LIDOCAINE. [Suspect]
     Active Substance: LIDOCAINE
     Indication: PAIN
     Dosage: 3 UNITS
     Route: 061
     Dates: start: 20170117, end: 20170927

REACTIONS (2)
  - Product substitution issue [None]
  - Application site erosion [None]

NARRATIVE: CASE EVENT DATE: 20170920
